FAERS Safety Report 7727413-4 (Version None)
Quarter: 2011Q3

REPORT INFORMATION
  Report Type: 
  Country: None (occurrence: None)
  Receive Date: 20110902
  Receipt Date: 20110823
  Transmission Date: 20111222
  Serious: Yes (Other)
  Sender: FDA-Public Use
  Company Number: US-PFIZER INC-2011163871

PATIENT
  Sex: Male

DRUGS (3)
  1. CELEBREX [Concomitant]
     Dosage: 200 MG, 1X/DAY
  2. PRISTIQ [Suspect]
     Indication: DEPRESSION
     Dosage: 50 MG, 1X/DAY
     Route: 048
     Dates: start: 20110609, end: 20110707
  3. DEXILANT [Concomitant]
     Dosage: 60 MG, 1X/DAY
     Route: 048

REACTIONS (4)
  - TUNNEL VISION [None]
  - VISUAL FIELD DEFECT [None]
  - VISUAL IMPAIRMENT [None]
  - VISION BLURRED [None]
